FAERS Safety Report 7772054-6 (Version None)
Quarter: 2011Q3

REPORT INFORMATION
  Report Type: 
  Country: None (occurrence: None)
  Receive Date: 20110922
  Receipt Date: 20100826
  Transmission Date: 20111222
  Serious: Yes (Other)
  Sender: FDA-Public Use
  Company Number: US-ASTRAZENECA-2007UW21666

PATIENT
  Sex: Female
  Weight: 101.6 kg

DRUGS (33)
  1. SEROQUEL [Suspect]
     Dosage: 50-300 MG
     Route: 048
     Dates: start: 20060725, end: 20060801
  2. RISPERDAL [Concomitant]
     Dates: start: 19990910
  3. ZOLOFT [Concomitant]
     Dosage: 100 MG TO 200 MG
     Dates: start: 19990910
  4. ZOLT [Concomitant]
  5. RISPERDAL [Concomitant]
     Dates: start: 19990910
  6. HYDROXYZINE [Concomitant]
  7. CLONIDINE [Concomitant]
  8. HALDOL [Concomitant]
     Dates: start: 20040101
  9. SEROQUEL [Suspect]
     Indication: PSYCHOTIC DISORDER
     Route: 048
     Dates: start: 20060525
  10. SEROQUEL [Suspect]
     Indication: ANXIETY
     Route: 048
     Dates: start: 20060525
  11. SEROQUEL [Suspect]
     Indication: SCHIZOPHRENIA
     Route: 048
     Dates: start: 20060525
  12. PROVERA [Concomitant]
  13. LISINOPRIL [Concomitant]
  14. COGNETION [Concomitant]
  15. RISPERDAL [Concomitant]
     Dates: start: 19990910
  16. SEROQUEL [Suspect]
     Dosage: 50-300 MG
     Route: 048
     Dates: start: 20060725, end: 20060801
  17. LEXAPRO [Concomitant]
  18. ZYPREXA [Concomitant]
     Indication: SCHIZOPHRENIA
     Dates: start: 20070101
  19. SEROQUEL [Suspect]
     Indication: SLEEP DISORDER
     Route: 048
     Dates: start: 20060525
  20. SEROQUEL [Suspect]
     Indication: DEPRESSION
     Route: 048
     Dates: start: 20060525
  21. SEROQUEL [Suspect]
     Dosage: 50-300 MG
     Route: 048
     Dates: start: 20060725, end: 20060801
  22. SEROQUEL [Suspect]
     Dosage: 50-300 MG
     Route: 048
     Dates: start: 20060725, end: 20060801
  23. SEROQUEL [Suspect]
     Dosage: 50-300 MG
     Route: 048
     Dates: start: 20060725, end: 20060801
  24. SEROQUEL [Suspect]
     Dosage: 50-300 MG
     Route: 048
     Dates: start: 20060725, end: 20060801
  25. RISPERDAL [Concomitant]
     Indication: SCHIZOPHRENIA
     Dates: start: 20030101, end: 20060101
  26. RISPERDAL [Concomitant]
     Indication: DEPRESSION
     Dates: start: 20030101, end: 20060101
  27. CLONAZEPAM [Concomitant]
  28. SEROQUEL [Suspect]
     Indication: AFFECTIVE DISORDER
     Route: 048
     Dates: start: 20060525
  29. RISPERDAL [Concomitant]
     Indication: ANXIETY
     Dates: start: 20030101, end: 20060101
  30. NICOTINE [Concomitant]
  31. ZYPREXA [Concomitant]
     Indication: DEPRESSION
     Dates: start: 20070101
  32. ZYPREXA [Concomitant]
     Indication: ANXIETY
     Dates: start: 20070101
  33. NAVANE [Concomitant]
     Dates: start: 20060705

REACTIONS (8)
  - TYPE 2 DIABETES MELLITUS [None]
  - DIABETIC COMPLICATION [None]
  - BIPOLAR DISORDER [None]
  - HYPERLIPIDAEMIA [None]
  - BLOOD TRIGLYCERIDES INCREASED [None]
  - DIABETES MELLITUS [None]
  - PANCREATITIS [None]
  - BLOOD CHOLESTEROL INCREASED [None]
